FAERS Safety Report 5767417-4 (Version None)
Quarter: 2008Q2

REPORT INFORMATION
  Report Type: 
  Country: None (occurrence: None)
  Receive Date: 20080612
  Receipt Date: 20080529
  Transmission Date: 20081010
  Serious: Yes (Death, Life-Threatening, Hospitalization, Other)
  Sender: FDA-Public Use
  Company Number: TW-BRISTOL-MYERS SQUIBB COMPANY-13481817

PATIENT
  Age: 74 Year
  Sex: Male
  Weight: 94 kg

DRUGS (18)
  1. ERBITUX [Suspect]
     Indication: RECTOSIGMOID CANCER
     Dosage: CYCLE1: 2MAY06,10MAY06,18MAY06;CYCLE2:30MAY06,6JUN06,13JUN06;CYCLE3:5JUL06,12JUL06,19JUL06.
     Dates: start: 20060719, end: 20060719
  2. IRINOTECAN HCL [Suspect]
     Indication: RECTOSIGMOID CANCER
     Dosage: MAR2006CYCLE1:2MAY06,10MAY06,18MAY06;CYCLE2:30MAY06,6JUN06,13JUN06;CYCLE3:5JUL06,12JUL06,19JUL06.
     Route: 042
     Dates: start: 20060719, end: 20060719
  3. LEUCOVORIN CALCIUM [Suspect]
     Indication: RECTOSIGMOID CANCER
     Dosage: NOV04OCT05:200MG/M2 MAR06(3CYC):20MG/M2 CYC1: 2,10,18MAY06; CYC2:30,6,13JUN06; CYC3:5,12,19JUL06.
     Dates: start: 20060719, end: 20060719
  4. FLUOROURACIL [Suspect]
     Indication: RECTOSIGMOID CANCER
     Dosage: NOV05OCT06:300MG/M2 MAR06:500MG/M2 CYC1: 2,10,18MAY06; CYC2:30,6,13JUN06; CYC3:5,12,19JUL06.
     Dates: start: 20060719, end: 20060719
  5. DOXYCYCLINE [Concomitant]
  6. LORAZEPAM [Concomitant]
  7. FENTANYL [Concomitant]
     Route: 062
     Dates: start: 20060530, end: 20060605
  8. FAMOTIDINE [Concomitant]
     Dates: start: 20060530, end: 20060605
  9. DOXAZOSIN MESYLATE [Concomitant]
     Dates: start: 20060530, end: 20060626
  10. DOXAZOSIN MESYLATE [Concomitant]
     Dates: start: 20060530, end: 20060605
  11. DOXAZOSIN MESYLATE [Concomitant]
     Dates: start: 20060606, end: 20060626
  12. SENNOSIDE [Concomitant]
     Dates: start: 20060530, end: 20060725
  13. LOPERAMIDE HCL [Concomitant]
     Dates: start: 20060530, end: 20060725
  14. LOPERAMIDE HCL [Concomitant]
     Dates: start: 20060712, end: 20060725
  15. DOMPERIDONE [Concomitant]
     Dates: start: 20060530, end: 20060718
  16. ZOLPIDEM [Concomitant]
     Dates: start: 20060606, end: 20060626
  17. DEXTROMETHORPHAN HYDROBROMIDE [Concomitant]
     Dates: start: 20060613, end: 20060615
  18. DICLOFENAC [Concomitant]
     Dates: start: 20060613, end: 20060615

REACTIONS (6)
  - ACUTE RESPIRATORY FAILURE [None]
  - DERMATITIS ACNEIFORM [None]
  - PARONYCHIA [None]
  - RENAL FAILURE ACUTE [None]
  - SEPSIS [None]
  - TOXIC EPIDERMAL NECROLYSIS [None]
